FAERS Safety Report 10688479 (Version 1)
Quarter: 2015Q1

REPORT INFORMATION
  Report Type: Spontaneous
  Country: US (occurrence: US)
  Receive Date: 20150102
  Receipt Date: 20150102
  Transmission Date: 20150720
  Serious: No
  Sender: FDA-Public Use
  Company Number: US-GLAXOSMITHKLINE-US2014GSK041848

PATIENT
  Age: 54 Year
  Sex: Male
  Weight: 78.5 kg

DRUGS (15)
  1. VITAMIN D [Concomitant]
     Active Substance: CHOLECALCIFEROL
  2. PROCHLORPERAZINE MALEATE. [Concomitant]
     Active Substance: PROCHLORPERAZINE MALEATE
  3. METFORMIN [Concomitant]
     Active Substance: METFORMIN HYDROCHLORIDE
  4. VOTRIENT [Suspect]
     Active Substance: PAZOPANIB HYDROCHLORIDE
     Indication: PULMONARY MASS
  5. CEPHALEXIN. [Concomitant]
     Active Substance: CEPHALEXIN
  6. LOVASTATIN. [Concomitant]
     Active Substance: LOVASTATIN
  7. VOTRIENT [Suspect]
     Active Substance: PAZOPANIB HYDROCHLORIDE
     Indication: SARCOMA
     Dosage: 800 MG, QD
     Route: 048
     Dates: start: 20141003
  8. BENAZEPRIL [Concomitant]
     Active Substance: BENAZEPRIL\BENAZEPRIL HYDROCHLORIDE
  9. MULTIVITAMINS [Concomitant]
     Active Substance: VITAMINS
  10. LANTUS [Concomitant]
     Active Substance: INSULIN GLARGINE
  11. ONDANSETRON [Concomitant]
     Active Substance: ONDANSETRON
  12. VICTOZA [Concomitant]
     Active Substance: LIRAGLUTIDE
  13. FOLIC ACID. [Concomitant]
     Active Substance: FOLIC ACID
  14. BYSTOLIC [Concomitant]
     Active Substance: NEBIVOLOL HYDROCHLORIDE
  15. AMLODIPINE [Concomitant]
     Active Substance: AMLODIPINE BESYLATE

REACTIONS (6)
  - Vomiting [Recovered/Resolved]
  - Dysgeusia [Unknown]
  - Diarrhoea [Unknown]
  - Hair colour changes [Unknown]
  - Fatigue [Unknown]
  - Nausea [Recovered/Resolved]

NARRATIVE: CASE EVENT DATE: 201410
